FAERS Safety Report 9031688 (Version 1)
Quarter: 2013Q1

REPORT INFORMATION
  Report Type: Spontaneous
  Country: US (occurrence: US)
  Receive Date: 20130124
  Receipt Date: 20130124
  Transmission Date: 20140127
  Serious: Yes (Hospitalization, Other)
  Sender: FDA-Public Use
  Company Number: US-NICOBRDEV-2013-00662

PATIENT
  Age: 77 Year
  Sex: Male

DRUGS (2)
  1. ALENDRONATE SODIUM- (UNKNOWN) [Suspect]
     Indication: BONE DENSITY INCREASED
     Dosage: 70 MG, DAILY
     Route: 048
  2. ASPIRIN ACTIV [Concomitant]
     Indication: PRODUCT USED FOR UNKNOWN INDICATION
     Dosage: UNK
     Route: 065

REACTIONS (5)
  - Laryngeal ulceration [Recovered/Resolved]
  - Haemoptysis [Recovered/Resolved]
  - Accidental overdose [Recovered/Resolved]
  - Dysphagia [Recovered/Resolved]
  - Cough [Recovered/Resolved]
